FAERS Safety Report 5124024-4 (Version None)
Quarter: 2006Q4

REPORT INFORMATION
  Report Type: 
  Country: None (occurrence: None)
  Receive Date: 20061010
  Receipt Date: 20060928
  Transmission Date: 20070319
  Serious: Yes (Other)
  Sender: FDA-Public Use
  Company Number: GB-PURDUE-GBR_2006_0002499

PATIENT
  Age: 68 Year
  Sex: Female

DRUGS (6)
  1. OXYCONTIN [Suspect]
     Indication: PAIN
     Dosage: 160 MG, DAILY
     Route: 048
  2. PREGABALIN [Suspect]
     Indication: DRUG USE FOR UNKNOWN INDICATION
     Dosage: 75 MG, DAILY
     Route: 048
     Dates: start: 20060524, end: 20060712
  3. AMITRIPTYLINE HCL [Concomitant]
     Indication: PAIN
     Dosage: 50 MG, DAILY
     Route: 048
  4. AUGMENTIN [Concomitant]
     Indication: INFECTION
     Dosage: 1.2 GRAM, DAILY
     Route: 048
  5. CLARITHROMYCIN [Concomitant]
     Indication: INFECTION
     Dosage: 50 MG, DAILY
     Route: 048
  6. FLUOXETINE [Concomitant]
     Indication: PAIN
     Dosage: 25 MG, DAILY
     Route: 048

REACTIONS (4)
  - CONFUSIONAL STATE [None]
  - DEPRESSED LEVEL OF CONSCIOUSNESS [None]
  - DRUG INTERACTION [None]
  - SOMNOLENCE [None]
